FAERS Safety Report 8201592-7 (Version None)
Quarter: 2012Q1

REPORT INFORMATION
  Report Type: 
  Country: None (occurrence: None)
  Receive Date: 20120308
  Receipt Date: 20120223
  Transmission Date: 20120608
  Serious: Yes (Hospitalization)
  Sender: FDA-Public Use
  Company Number: INT_00057_2012

PATIENT
  Age: 24 Month
  Sex: Male
  Weight: 13 kg

DRUGS (2)
  1. CEFTRIAXONE [Suspect]
     Indication: MENINGITIS
     Dosage: (100 MG/KG/DAY) 1 WEEK 3 DAYS UNTIL CONTINUING)
  2. VANCOMYCIN [Suspect]
     Indication: MENINGITIS
     Dosage: (65 MG/KG/DAY 1 WEEK 3 DAYS UNTIL NOT CONTINUING)

REACTIONS (4)
  - HYPERURICOSURIA [None]
  - URINARY RETENTION [None]
  - TENDERNESS [None]
  - SUPRAPUBIC PAIN [None]
